FAERS Safety Report 6142224-1 (Version None)
Quarter: 2009Q2

REPORT INFORMATION
  Report Type: 
  Country: None (occurrence: None)
  Receive Date: 20090403
  Receipt Date: 20071121
  Transmission Date: 20091009
  Serious: Yes (Death)
  Sender: FDA-Public Use
  Company Number: US-ASTRAZENECA-2006UW21568

PATIENT
  Age: 14497 Day
  Sex: Male
  Weight: 84.4 kg

DRUGS (9)
  1. SEROQUEL [Suspect]
     Indication: DEPRESSION
     Route: 048
     Dates: start: 20051121, end: 20060220
  2. SEROQUEL [Suspect]
     Dosage: 25MG-50MG
     Route: 048
     Dates: start: 20051101
  3. ASPIRIN [Concomitant]
  4. METOPROLOL TARTRATE [Concomitant]
  5. FELODIPINE [Concomitant]
  6. CITALOPRAM [Concomitant]
  7. HYDROCODONE BITARTRATE AND ACETAMINOPHEN [Concomitant]
  8. SERTRALINE HCL [Concomitant]
  9. FLUOXETINE [Concomitant]

REACTIONS (7)
  - ARTERIOSCLEROSIS [None]
  - DIABETES MELLITUS [None]
  - GAIT DISTURBANCE [None]
  - HALLUCINATION, AUDITORY [None]
  - MIOSIS [None]
  - PANIC DISORDER WITH AGORAPHOBIA [None]
  - SINUS DISORDER [None]
